FAERS Safety Report 12835148 (Version 3)
Quarter: 2018Q1

REPORT INFORMATION
  Report Type: Report from Study
  Country: GB (occurrence: GB)
  Receive Date: 20161011
  Receipt Date: 20180101
  Transmission Date: 20180508
  Serious: Yes (Death, Hospitalization, Other)
  Sender: FDA-Public Use
  Company Number: GB-AMGEN-GBRSL2016137548

PATIENT
  Age: 72 Year
  Sex: Male

DRUGS (1)
  1. ARANESP [Suspect]
     Active Substance: DARBEPOETIN ALFA
     Indication: PRODUCT USED FOR UNKNOWN INDICATION
     Dosage: 30 MUG, UNK
     Route: 065

REACTIONS (5)
  - Cystitis [Unknown]
  - Constipation [Not Recovered/Not Resolved]
  - Thyroid disorder [Unknown]
  - Death [Fatal]
  - Blood sodium decreased [Unknown]

NARRATIVE: CASE EVENT DATE: 20171222
